FAERS Safety Report 8967150 (Version 3)
Quarter: 2013Q4

REPORT INFORMATION
  Report Type: Spontaneous
  Country: IT (occurrence: IT)
  Receive Date: 20121217
  Receipt Date: 20131211
  Transmission Date: 20140711
  Serious: Yes (Death)
  Sender: FDA-Public Use
  Company Number: PHHY2012IT115469

PATIENT
  Age: 78 Year
  Sex: Female

DRUGS (4)
  1. ZOMETA [Suspect]
     Indication: METASTASES TO BONE
     Dosage: 4 MG MONTHLY
     Route: 042
     Dates: start: 20080801, end: 20081201
  2. ZOMETA [Suspect]
     Dosage: 4 MG MONTHLY
     Route: 042
     Dates: start: 20090301, end: 20100301
  3. SUTENT [Suspect]
     Indication: RENAL CANCER
     Dosage: UNK UKN, UNK
     Route: 042
     Dates: start: 20080801, end: 20090101
  4. SUTENT [Suspect]
     Dosage: UNK UKN, UNK
     Route: 042

REACTIONS (1)
  - Osteonecrosis of jaw [Fatal]
